FAERS Safety Report 7002108-3 (Version None)
Quarter: 2010Q3

REPORT INFORMATION
  Report Type: 
  Country: None (occurrence: None)
  Receive Date: 20100920
  Receipt Date: 20070523
  Transmission Date: 20110219
  Serious: Yes (Other)
  Sender: FDA-Public Use
  Company Number: US-ASTRAZENECA-2006UW27547

PATIENT
  Age: 13191 Day
  Sex: Female
  Weight: 127 kg

DRUGS (18)
  1. SEROQUEL [Suspect]
     Indication: PARANOIA
     Dosage: 20-400 MG (FLUCTUATION)
     Route: 048
     Dates: start: 19990325, end: 20070814
  2. SEROQUEL [Suspect]
     Indication: BIPOLAR DISORDER
     Dosage: 20-400 MG (FLUCTUATION)
     Route: 048
     Dates: start: 19990325, end: 20070814
  3. SEROQUEL [Suspect]
     Indication: DEPRESSION
     Dosage: 20-400 MG (FLUCTUATION)
     Route: 048
     Dates: start: 19990325, end: 20070814
  4. SEROQUEL [Suspect]
     Route: 048
     Dates: start: 20050202, end: 20060101
  5. SEROQUEL [Suspect]
     Route: 048
     Dates: start: 20050202, end: 20060101
  6. SEROQUEL [Suspect]
     Route: 048
     Dates: start: 20050202, end: 20060101
  7. ABILIFY [Concomitant]
  8. BUSPAR [Concomitant]
  9. GEODON [Concomitant]
  10. DILANTIN [Concomitant]
  11. KLONOPIN [Concomitant]
     Dosage: 0.5-2 MG
     Route: 048
     Dates: start: 20001107
  12. GLUCOPHAGE [Concomitant]
     Dosage: 500 MG - 1000 MG
     Route: 048
     Dates: start: 20041119
  13. ZOLOFT [Concomitant]
     Dosage: 100-200 MG
     Route: 048
     Dates: start: 20020709
  14. PREVACID [Concomitant]
     Dosage: 20-60 MG
     Route: 048
     Dates: start: 20020709
  15. DEPAKOTE [Concomitant]
     Dosage: 250-2500 MG
     Route: 048
     Dates: start: 20000707
  16. COGENTIN [Concomitant]
     Dosage: 2-4 MG
     Route: 048
     Dates: start: 19950612
  17. PRILOSEC [Concomitant]
     Dates: start: 20000920
  18. TYLENOL W/ CODEINE [Concomitant]
     Route: 048
     Dates: start: 19990306

REACTIONS (4)
  - DIABETES MELLITUS [None]
  - PANCREATITIS [None]
  - TYPE 1 DIABETES MELLITUS [None]
  - TYPE 2 DIABETES MELLITUS [None]
